FAERS Safety Report 15574599 (Version 1)
Quarter: 2018Q4

REPORT INFORMATION
  Report Type: Spontaneous
  Country: AR (occurrence: AR)
  Receive Date: 20181101
  Receipt Date: 20181101
  Transmission Date: 20190205
  Serious: Yes (Hospitalization, Other)
  Sender: FDA-Public Use
  Company Number: AR-ASTRAZENECA-2018SF41537

PATIENT
  Sex: Male

DRUGS (6)
  1. DAPAGLIFLOZIN. [Suspect]
     Active Substance: DAPAGLIFLOZIN
     Dosage: UNKNOWN
     Route: 048
  2. FUROSEMIDE. [Concomitant]
     Active Substance: FUROSEMIDE
  3. METFORMIN [Concomitant]
     Active Substance: METFORMIN HYDROCHLORIDE
  4. ASPIRIN. [Concomitant]
     Active Substance: ASPIRIN
  5. CARVEDILOL. [Concomitant]
     Active Substance: CARVEDILOL
  6. INSULIN [Concomitant]
     Active Substance: INSULIN NOS
     Dosage: HIGH DOSES, 3 TIMES A DAY (}1U/KG/DAY)

REACTIONS (3)
  - Peripheral ischaemia [Unknown]
  - Peripheral arterial occlusive disease [Unknown]
  - Leg amputation [Unknown]
